FAERS Safety Report 7937687-2 (Version None)
Quarter: 2011Q4

REPORT INFORMATION
  Report Type: 
  Country: None (occurrence: None)
  Receive Date: 20111123
  Receipt Date: 20111111
  Transmission Date: 20120403
  Serious: Yes (Hospitalization)
  Sender: FDA-Public Use
  Company Number: PHHY2011BR099423

PATIENT
  Sex: Female
  Weight: 65 kg

DRUGS (2)
  1. CITALOPRAM HYDROBROMIDE [Concomitant]
     Dosage: 1 TABLET AT NIGHT
  2. EXELON [Suspect]
     Indication: DEMENTIA ALZHEIMER'S TYPE
     Dosage: 1 CAPSULE A DAY
     Route: 048
     Dates: start: 20100701

REACTIONS (3)
  - DRUG INTOLERANCE [None]
  - VOMITING [None]
  - NAUSEA [None]
